FAERS Safety Report 9031424 (Version 2)
Quarter: 2013Q1

REPORT INFORMATION
  Report Type: Spontaneous
  Country: US (occurrence: US)
  Receive Date: 20130124
  Receipt Date: 20130206
  Transmission Date: 20140127
  Serious: Yes (Hospitalization, Other)
  Sender: FDA-Public Use
  Company Number: US-GILEAD-2012-0065029

PATIENT
  Sex: Female

DRUGS (2)
  1. LETAIRIS [Suspect]
     Indication: PULMONARY ARTERIAL HYPERTENSION
     Dosage: 5 MG, QD
     Route: 048
     Dates: start: 20120629
  2. LETAIRIS [Suspect]
     Indication: CARDIAC VALVE DISEASE
     Dosage: 5 MG, QD
     Dates: start: 20120701

REACTIONS (4)
  - Hysterectomy [Unknown]
  - Pneumonia [Unknown]
  - Herpes zoster [Unknown]
  - Dyspnoea [Unknown]
